FAERS Safety Report 25928029 (Version 2)
Quarter: 2025Q4

REPORT INFORMATION
  Report Type: Report from Study
  Country: GB (occurrence: GB)
  Receive Date: 20251016
  Receipt Date: 20251210
  Transmission Date: 20260117
  Serious: Yes (Other)
  Sender: ALEXION PHARMACEUTICALS
  Company Number: GB-ASTRAZENECA-202510EEA010947GB

PATIENT
  Age: 27 Year
  Sex: Male

DRUGS (1)
  1. ULTOMIRIS [Suspect]
     Active Substance: RAVULIZUMAB-CWVZ
     Indication: Atypical haemolytic uraemic syndrome
     Dosage: 3300 MILLIGRAM, Q8W
     Dates: start: 20220721

REACTIONS (5)
  - Seizure [Unknown]
  - Renal impairment [Unknown]
  - Blood pressure increased [Unknown]
  - Paternal exposure timing unspecified [Unknown]
  - Stress [Unknown]
